FAERS Safety Report 6642060-3 (Version None)
Quarter: 2010Q1

REPORT INFORMATION
  Report Type: 
  Country: None (occurrence: None)
  Receive Date: 20100319
  Receipt Date: 20100309
  Transmission Date: 20100710
  Serious: Yes (Hospitalization)
  Sender: FDA-Public Use
  Company Number: PHEH2010US02761

PATIENT
  Sex: Male
  Weight: 69.85 kg

DRUGS (4)
  1. EXJADE [Suspect]
     Indication: SICKLE CELL ANAEMIA
     Dosage: 1500 MG, QD
     Route: 048
     Dates: start: 20070630
  2. OXYCONTIN [Concomitant]
     Dosage: 40 MG, Q12H
     Route: 048
     Dates: start: 20100208
  3. FOLIC ACID [Concomitant]
     Dosage: 1 MG DAILY
     Route: 048
  4. SOMA [Concomitant]
     Dosage: 1 TABLET Q4H
     Route: 048

REACTIONS (2)
  - CHEST PAIN [None]
  - MUSCULOSKELETAL PAIN [None]
